FAERS Safety Report 10667201 (Version 1)
Quarter: 2014Q4

REPORT INFORMATION
  Report Type: Spontaneous
  Country: US (occurrence: US)
  Receive Date: 20141222
  Receipt Date: 20141222
  Transmission Date: 20150529
  Serious: No
  Sender: FDA-Public Use
  Company Number: US-TEVA-465420USA

PATIENT
  Sex: Female

DRUGS (1)
  1. CEFPROZIL. [Suspect]
     Active Substance: CEFPROZIL

REACTIONS (4)
  - Dyspnoea [Unknown]
  - Abdominal discomfort [Unknown]
  - Hot flush [Unknown]
  - Erythema [Unknown]
